FAERS Safety Report 10843540 (Version 5)
Quarter: 2015Q3

REPORT INFORMATION
  Report Type: Report from Study
  Country: JP (occurrence: JP)
  Receive Date: 20150220
  Receipt Date: 20150914
  Transmission Date: 20151125
  Serious: Yes (Hospitalization)
  Sender: FDA-Public Use
  Company Number: JP-EISAI MEDICAL RESEARCH-EC-2014-000762

PATIENT
  Age: 84 Year
  Sex: Female
  Weight: 51 kg

DRUGS (19)
  1. THYRADIN [Concomitant]
     Active Substance: LEVOTHYROXINE
  2. FERROUS CITRATE [Concomitant]
     Active Substance: FERROUS CITRATE
  3. LENVATINIB [Suspect]
     Active Substance: LENVATINIB
     Indication: HEPATOCELLULAR CARCINOMA
     Route: 048
     Dates: start: 20140912, end: 20140918
  4. LENVATINIB [Suspect]
     Active Substance: LENVATINIB
     Route: 048
     Dates: start: 20141218, end: 20150121
  5. LENVATINIB [Suspect]
     Active Substance: LENVATINIB
     Route: 048
     Dates: start: 20150127, end: 20150213
  6. UREPEARL [Concomitant]
     Active Substance: UREA
  7. LOXOPROFEN [Concomitant]
     Active Substance: LOXOPROFEN
  8. BERIZYM [Concomitant]
     Active Substance: CELLULASE\DIASTASE\LIPASE
  9. LIVACT [Concomitant]
     Active Substance: AMINO ACIDS
  10. MAGLAX [Concomitant]
     Active Substance: MAGNESIUM OXIDE
  11. LENVATINIB [Suspect]
     Active Substance: LENVATINIB
     Route: 048
     Dates: start: 20141021, end: 20141214
  12. LENVATINIB [Suspect]
     Active Substance: LENVATINIB
     Route: 048
     Dates: start: 20140922, end: 20141006
  13. LACTULOSE. [Concomitant]
     Active Substance: LACTULOSE
  14. PARIET [Concomitant]
     Active Substance: RABEPRAZOLE SODIUM
  15. OLMETEC [Concomitant]
     Active Substance: OLMESARTAN MEDOXOMIL
  16. AMLODIPINE [Concomitant]
     Active Substance: AMLODIPINE BESYLATE
  17. ADETPHOS [Concomitant]
     Active Substance: ADENOSINE TRIPHOSPHATE
  18. URSO [Concomitant]
     Active Substance: URSODIOL
  19. PROMAC [Concomitant]
     Active Substance: NITROFURANTOIN

REACTIONS (2)
  - Muscular weakness [Recovered/Resolved]
  - Hepatic encephalopathy [Recovered/Resolved]

NARRATIVE: CASE EVENT DATE: 20141006
